FAERS Safety Report 23165451 (Version 2)
Quarter: 2023Q4

REPORT INFORMATION
  Report Type: Spontaneous
  Country: DE (occurrence: DE)
  Receive Date: 20231109
  Receipt Date: 20231129
  Transmission Date: 20240109
  Serious: Yes (Other)
  Sender: FDA-Public Use
  Company Number: DE-TORRENT-00025580

PATIENT
  Age: 57 Year
  Sex: Female

DRUGS (3)
  1. ETORICOXIB [Suspect]
     Active Substance: ETORICOXIB
     Indication: Osteoarthritis
     Dosage: 90 MILLIGRAM, PRN (NOT DAILY ONLY WHEN PAIN)
     Route: 048
     Dates: start: 2021, end: 20231014
  2. CELECOXIB [Suspect]
     Active Substance: CELECOXIB
     Indication: Product used for unknown indication
     Dosage: 100 MILLIGRAM
     Route: 065
  3. IBUPROFEN [Concomitant]
     Active Substance: IBUPROFEN
     Indication: Product used for unknown indication
     Route: 065

REACTIONS (12)
  - Pulmonary pain [Recovered/Resolved]
  - Ear swelling [Recovered/Resolved]
  - Heart rate irregular [Recovered/Resolved]
  - Swelling face [Recovered/Resolved]
  - Arrhythmia [Unknown]
  - Erythema [Recovered/Resolved]
  - Pruritus [Recovered/Resolved]
  - Dyspnoea [Recovered/Resolved]
  - Hypersensitivity [Recovered/Resolved]
  - Rash [Recovered/Resolved]
  - Swelling [Unknown]
  - Rash erythematous [Unknown]

NARRATIVE: CASE EVENT DATE: 20231014
